FAERS Safety Report 6092855-2 (Version None)
Quarter: 2009Q1

REPORT INFORMATION
  Report Type: 
  Country: None (occurrence: None)
  Receive Date: 20090225
  Receipt Date: 20090217
  Transmission Date: 20090719
  Serious: Yes (Other)
  Sender: FDA-Public Use
  Company Number: US-B.I. PHARMACEUTICALS,INC./RIDGEFIELD-2009-BP-01949BP

PATIENT
  Age: 82 Year
  Sex: Male

DRUGS (2)
  1. MIRAPEX [Suspect]
     Indication: RESTLESS LEGS SYNDROME
     Dosage: .75MG
     Route: 048
     Dates: start: 20070101
  2. COUMADIN [Concomitant]
     Indication: THROMBOSIS

REACTIONS (2)
  - INCORRECT DOSE ADMINISTERED [None]
  - SUDDEN ONSET OF SLEEP [None]
